FAERS Safety Report 21614638 (Version 5)
Quarter: 2023Q2

REPORT INFORMATION
  Report Type: Report from Study
  Country: US (occurrence: None)
  Receive Date: 20221118
  Receipt Date: 20230509
  Transmission Date: 20230721
  Serious: Yes (Other)
  Sender: FDA-Public Use
  Company Number: US-ROCHE-3216638

PATIENT
  Age: 79 Year
  Sex: Male
  Weight: 71.7 kg

DRUGS (21)
  1. RANIBIZUMAB [Suspect]
     Active Substance: RANIBIZUMAB
     Indication: Neovascular age-related macular degeneration
     Dosage: 100 MG/ML
     Route: 050
     Dates: start: 20210106
  2. RANIBIZUMAB [Suspect]
     Active Substance: RANIBIZUMAB
  3. RANIBIZUMAB [Suspect]
     Active Substance: RANIBIZUMAB
  4. RANIBIZUMAB [Suspect]
     Active Substance: RANIBIZUMAB
  5. RANIBIZUMAB [Suspect]
     Active Substance: RANIBIZUMAB
  6. RANIBIZUMAB [Concomitant]
     Active Substance: RANIBIZUMAB
     Indication: Neovascular age-related macular degeneration
     Dosage: DOSE OF STUDY DRUG FIRST ADMINISTERED: 10 MG/ML,  DOSE LAST STUDY DRUG ADMIN PRIOR AE AND SAE 10 MG
     Route: 050
     Dates: start: 20210106
  7. RANIBIZUMAB [Concomitant]
     Active Substance: RANIBIZUMAB
     Indication: Neovascular age-related macular degeneration
  8. LEVOTHYROXINE [Concomitant]
     Active Substance: LEVOTHYROXINE
     Dosage: MG
     Route: 048
     Dates: start: 1970
  9. ATORVASTATIN [Concomitant]
     Active Substance: ATORVASTATIN
     Indication: Hyperlipidaemia
     Dosage: MG
     Route: 048
  10. VIAGRA [Concomitant]
     Active Substance: SILDENAFIL CITRATE
     Indication: Erectile dysfunction
     Route: 048
  11. AMIODARONE [Concomitant]
     Active Substance: AMIODARONE
     Route: 048
     Dates: start: 2015
  12. ASPIRIN [Concomitant]
     Active Substance: ASPIRIN
     Dates: start: 20210106
  13. ELIQUIS [Concomitant]
     Active Substance: APIXABAN
     Dates: start: 20210106
  14. AMLODIPINE BESYLATE [Concomitant]
     Active Substance: AMLODIPINE BESYLATE
     Indication: Cardiovascular event prophylaxis
     Route: 048
     Dates: start: 20220511
  15. AMLODIPINE BESYLATE [Concomitant]
     Active Substance: AMLODIPINE BESYLATE
     Indication: Acute myocardial infarction
  16. TOBRAMYCIN [Concomitant]
     Active Substance: TOBRAMYCIN
     Dates: start: 20221108, end: 20221110
  17. TOBRAMYCIN [Concomitant]
     Active Substance: TOBRAMYCIN
     Dates: start: 20230104
  18. LUCENTIS [Concomitant]
     Active Substance: RANIBIZUMAB
     Indication: Neovascular age-related macular degeneration
     Dates: start: 20230104, end: 20230104
  19. LUCENTIS [Concomitant]
     Active Substance: RANIBIZUMAB
     Indication: Neovascular age-related macular degeneration
     Dates: start: 20230303, end: 20230303
  20. LUCENTIS [Concomitant]
     Active Substance: RANIBIZUMAB
     Dates: start: 20230503, end: 20230503
  21. LISINOPRIL [Concomitant]
     Active Substance: LISINOPRIL
     Indication: Hypertension
     Dates: start: 202301

REACTIONS (2)
  - Device issue [Unknown]
  - No adverse event [Unknown]

NARRATIVE: CASE EVENT DATE: 20221108
